FAERS Safety Report 7660342-3 (Version None)
Quarter: 2011Q3

REPORT INFORMATION
  Report Type: 
  Country: None (occurrence: None)
  Receive Date: 20110805
  Receipt Date: 20110727
  Transmission Date: 20111222
  Serious: Yes (Other)
  Sender: FDA-Public Use
  Company Number: JP-PFIZER INC-2011081340

PATIENT
  Age: 63 Year
  Sex: Female
  Weight: 38 kg

DRUGS (1)
  1. LIPITOR [Suspect]
     Indication: HYPERLIPIDAEMIA
     Dosage: 10 MG, 1X/DAY
     Route: 048
     Dates: start: 20110304, end: 20110403

REACTIONS (4)
  - HEPATITIS [None]
  - LIVER DISORDER [None]
  - HEPATIC LESION [None]
  - HEPATIC CYST [None]
